FAERS Safety Report 9234079 (Version 1)
Quarter: 2013Q1

REPORT INFORMATION
  Report Type: Spontaneous
  Country: US (occurrence: None)
  Receive Date: 20121031
  Receipt Date: 20121031
  Transmission Date: 20140127
  Serious: No
  Sender: FDA-Public Use
  Company Number: PHEH2012US012866

PATIENT
  Age: 67 Year
  Sex: Female
  Weight: 92.1 kg

DRUGS (15)
  1. GILENYA [Suspect]
     Indication: RELAPSING-REMITTING MULTIPLE SCLEROSIS
     Route: 048
     Dates: start: 20120522
  2. LISINOPRIL (LISINOPRIL) [Concomitant]
  3. HYDROCHLOROTHIAZIDE (HYDROCHLOROTHIAZIDE) [Concomitant]
  4. VITAMIN C [Concomitant]
  5. AMPYRA (FAMPRIDINE) [Concomitant]
  6. ALBUTEROL (SALBUTAMOL) [Concomitant]
  7. BACLOFEN (BACLOFEN) [Concomitant]
  8. MIRALAX [Concomitant]
  9. FLAXSEED OIL (LINUM USITATISSIMUM SEED OIL) [Concomitant]
  10. PANTOPRAZOLE (PANTOPRAZOLE) [Concomitant]
  11. PENNSAID (DICLOFENAC SODIUM) [Concomitant]
  12. STOOL SOFTENER (DOCUSATE SODIUM) [Concomitant]
  13. ULTRAM (TRAMADOL HYDROCHLORIDE) [Concomitant]
  14. VALIUM (DIAZEPAM) [Concomitant]
  15. VITAMIN D3 (COLECALCIFEROL) [Concomitant]

REACTIONS (8)
  - Cystitis [None]
  - Blood pressure fluctuation [None]
  - Heart rate decreased [None]
  - Viral infection [None]
  - Tremor [None]
  - Asthenia [None]
  - Diarrhoea [None]
  - Abdominal discomfort [None]
